FAERS Safety Report 6054044-7 (Version None)
Quarter: 2009Q1

REPORT INFORMATION
  Report Type: 
  Country: None (occurrence: None)
  Receive Date: 20090127
  Receipt Date: 20090122
  Transmission Date: 20090719
  Serious: Yes (Other)
  Sender: FDA-Public Use
  Company Number: US-WYE-H07831509

PATIENT

DRUGS (1)
  1. RAPAMUNE [Suspect]
     Dosage: NOT PROVIDED
     Route: 048

REACTIONS (1)
  - RENAL CELL CARCINOMA [None]
